FAERS Safety Report 4620570-8 (Version None)
Quarter: 2005Q1

REPORT INFORMATION
  Report Type: 
  Country: None (occurrence: None)
  Receive Date: 20050324
  Receipt Date: 20050318
  Transmission Date: 20050727
  Serious: Yes (Hospitalization)
  Sender: FDA-Public Use
  Company Number: 6013726

PATIENT
  Age: 66 Year
  Sex: Female

DRUGS (4)
  1. LODOZ 10 MG/ 6.25 [Suspect]
     Dosage: 1 DOSAGE FORMS (1 DOSAGE FORMS, 1 IN 1 D)
     Route: 048
  2. CACIT (CITRIC ACID, CALCIUM CARBONATE) [Suspect]
     Dosage: 1 DOSAGE FORMS (1 DOSAGE FORMS, 1 IN 1 D)
     Route: 048
  3. EVISTA [Suspect]
     Dosage: ORAL
     Route: 048
     Dates: start: 20050211
  4. FOSAMAX [Suspect]
     Dosage: 1 DOSAGE FORMS (1 DOSAGE FORMS, 1 IN 1 D)
     Route: 048

REACTIONS (2)
  - DEEP VEIN THROMBOSIS [None]
  - PULMONARY EMBOLISM [None]
